FAERS Safety Report 25856659 (Version 1)
Quarter: 2025Q3

REPORT INFORMATION
  Report Type: Spontaneous
  Country: US (occurrence: US)
  Receive Date: 20250929
  Receipt Date: 20250929
  Transmission Date: 20251021
  Serious: Yes (Other)
  Sender: MACLEODS
  Company Number: US-MLMSERVICE-20250908-PI638794-00246-1

PATIENT

DRUGS (1)
  1. OLANZAPINE [Suspect]
     Active Substance: OLANZAPINE
     Indication: Schizophrenia
     Route: 065

REACTIONS (2)
  - Hyperglycaemic hyperosmolar nonketotic syndrome [Recovered/Resolved]
  - Diabetic ketoacidosis [Recovered/Resolved]
